FAERS Safety Report 25181141 (Version 1)
Quarter: 2025Q2

REPORT INFORMATION
  Report Type: Report from Study
  Country: US (occurrence: US)
  Receive Date: 20250410
  Receipt Date: 20250410
  Transmission Date: 20250716
  Serious: Yes (Other)
  Sender: ABBVIE
  Company Number: US-ABBVIE-6110943

PATIENT
  Age: 37 Year
  Sex: Female
  Weight: 102.51 kg

DRUGS (5)
  1. HUMIRA [Suspect]
     Active Substance: ADALIMUMAB
     Indication: Psoriasis
     Dosage: CITRATE FREE
     Route: 058
     Dates: start: 20210312
  2. HUMIRA [Concomitant]
     Active Substance: ADALIMUMAB
     Indication: Product used for unknown indication
     Route: 058
     Dates: start: 202311, end: 202412
  3. HUMIRA [Concomitant]
     Active Substance: ADALIMUMAB
     Indication: Product used for unknown indication
     Route: 058
     Dates: start: 2024
  4. INFLUENZA VIRUS VACCINE [Concomitant]
     Active Substance: INFLUENZA VIRUS VACCINE
     Indication: Product used for unknown indication
     Route: 058
     Dates: start: 2024
  5. COVID-19 vaccine [Concomitant]
     Indication: Product used for unknown indication

REACTIONS (8)
  - Neck surgery [Unknown]
  - COVID-19 pneumonia [Recovered/Resolved]
  - Cellulitis [Unknown]
  - Peripheral swelling [Unknown]
  - Cellulitis [Recovered/Resolved]
  - Skin disorder [Unknown]
  - COVID-19 pneumonia [Unknown]
  - Dyspnoea [Unknown]

NARRATIVE: CASE EVENT DATE: 20240101
